FAERS Safety Report 8018258-9 (Version None)
Quarter: 2012Q1

REPORT INFORMATION
  Report Type: 
  Country: None (occurrence: None)
  Receive Date: 20120103
  Receipt Date: 20111227
  Transmission Date: 20120608
  Serious: Yes (Other)
  Sender: FDA-Public Use
  Company Number: ES-SANOFI-AVENTIS-2011SA085163

PATIENT
  Age: 67 Year
  Sex: Male

DRUGS (1)
  1. ELOXATIN [Suspect]
     Dosage: 260MG, IV PERIF'RICA. VELOCIDAD:166ML/H. T PERF.3H
     Route: 041
     Dates: start: 20111018, end: 20111018

REACTIONS (5)
  - HEADACHE [None]
  - SENSORY DISTURBANCE [None]
  - NAUSEA [None]
  - ACUTE CORONARY SYNDROME [None]
  - PRURITUS [None]
